FAERS Safety Report 9074759 (Version 2)
Quarter: 2013Q1

REPORT INFORMATION
  Report Type: Spontaneous
  Country: US (occurrence: US)
  Receive Date: 20130129
  Receipt Date: 20130131
  Transmission Date: 20140127
  Serious: Yes (Other)
  Sender: FDA-Public Use
  Company Number: US-RB-048847-13

PATIENT
  Age: 66 Year
  Sex: Male

DRUGS (3)
  1. MUCINEX FAST MAX ADULT COLD + SINUS (ACETAMINOPHEN) [Suspect]
     Indication: PRODUCT USED FOR UNKNOWN INDICATION
     Dosage: PATIENT TOOK 4 DOSE ON 14-JAN-2013.
     Route: 048
     Dates: start: 20130114
  2. MUCINEX FAST MAX ADULT COLD + SINUS [Suspect]
  3. MUCINEX FAST MAX ADULT COLD + SINUS [Suspect]

REACTIONS (10)
  - Exophthalmos [Recovered/Resolved]
  - Unevaluable event [Recovered/Resolved]
  - Nervousness [Recovered/Resolved]
  - Dysarthria [Recovered/Resolved]
  - Dizziness [Recovered/Resolved]
  - Anxiety [Recovered/Resolved]
  - Vision blurred [Recovered/Resolved]
  - Hypertension [Recovered/Resolved]
  - Palpitations [Recovered/Resolved]
  - Rash [Recovered/Resolved]
